FAERS Safety Report 25626166 (Version 1)
Quarter: 2025Q3

REPORT INFORMATION
  Report Type: Other
  Country: US (occurrence: US)
  Receive Date: 20250731
  Receipt Date: 20250731
  Transmission Date: 20251020
  Serious: Yes (Hospitalization)
  Sender: ANI
  Company Number: US-ANIPHARMA-023914

PATIENT
  Sex: Female

DRUGS (2)
  1. LACTULOSE [Suspect]
     Active Substance: LACTULOSE
     Indication: Hyperammonaemia
  2. SODIUM BICARBONATE [Concomitant]
     Active Substance: SODIUM BICARBONATE
     Indication: Hyperammonaemia

REACTIONS (1)
  - Treatment noncompliance [Unknown]
